FAERS Safety Report 7996210-7 (Version None)
Quarter: 2011Q4

REPORT INFORMATION
  Report Type: 
  Country: None (occurrence: None)
  Receive Date: 20111220
  Receipt Date: 20111214
  Transmission Date: 20120403
  Serious: Yes (Death)
  Sender: FDA-Public Use
  Company Number: FR-PFIZER INC-2011305077

PATIENT
  Sex: Male

DRUGS (1)
  1. TORISEL [Suspect]
     Indication: MANTLE CELL LYMPHOMA RECURRENT
     Dosage: UNKNOWN

REACTIONS (1)
  - PULMONARY TOXICITY [None]
